FAERS Safety Report 17826137 (Version 1)
Quarter: 2020Q2

REPORT INFORMATION
  Report Type: Spontaneous
  Country: US (occurrence: US)
  Receive Date: 20200526
  Receipt Date: 20200526
  Transmission Date: 20200714
  Serious: Yes (Hospitalization)
  Sender: FDA-Public Use
  Company Number: US-TEVA-2020-US-1239282

PATIENT
  Sex: Male

DRUGS (2)
  1. GABAPENTIN. [Suspect]
     Active Substance: GABAPENTIN
     Route: 064
  2. BUPRENORPHINE. [Suspect]
     Active Substance: BUPRENORPHINE
     Route: 064

REACTIONS (10)
  - Deafness bilateral [Recovering/Resolving]
  - Drug withdrawal syndrome neonatal [Recovering/Resolving]
  - Premature baby [Recovering/Resolving]
  - Neonatal respiratory distress [Recovering/Resolving]
  - Hydronephrosis [Recovering/Resolving]
  - Low birth weight baby [Recovering/Resolving]
  - Hypoxic-ischaemic encephalopathy [Recovering/Resolving]
  - Withdrawal syndrome [Recovering/Resolving]
  - Foetal exposure during pregnancy [Recovering/Resolving]
  - Blindness [Recovering/Resolving]
